FAERS Safety Report 9217271 (Version 2)
Quarter: 2013Q2

REPORT INFORMATION
  Report Type: Spontaneous
  Country: US (occurrence: US)
  Receive Date: 20130408
  Receipt Date: 20130503
  Transmission Date: 20140414
  Serious: No
  Sender: FDA-Public Use
  Company Number: US-PFIZER INC-2013109910

PATIENT
  Age: 38 Year
  Sex: Female
  Weight: 53.52 kg

DRUGS (7)
  1. LYRICA [Suspect]
     Indication: BACK PAIN
     Dosage: 75 MG, 2X/DAY
     Dates: start: 20130404
  2. LYRICA [Suspect]
     Indication: PAIN IN EXTREMITY
     Dosage: UNK
  3. ACTOPLUS MET XR [Concomitant]
     Indication: DIABETES MELLITUS
     Dosage: 15/1000MG, 1X/DAY
  4. BENAZEPRIL [Concomitant]
     Indication: BLOOD PRESSURE ABNORMAL
     Dosage: 20 MG, 1X/DAY
  5. PRAVASTATIN [Concomitant]
     Indication: BLOOD CHOLESTEROL ABNORMAL
     Dosage: 20 MG, 1X/DAY
  6. VITAMIN B COMPLEX [Concomitant]
     Indication: ASTHENIA
     Dosage: UNK
  7. VITAMIN D3 [Concomitant]
     Indication: HYPOVITAMINOSIS
     Dosage: 2000 MG, 1X/DAY

REACTIONS (1)
  - Drug ineffective [Not Recovered/Not Resolved]
